FAERS Safety Report 6825407-4 (Version None)
Quarter: 2010Q3

REPORT INFORMATION
  Report Type: 
  Country: None (occurrence: None)
  Receive Date: 20100708
  Receipt Date: 20070127
  Transmission Date: 20110219
  Serious: No
  Sender: FDA-Public Use
  Company Number: US-PFIZER INC-2007002319

PATIENT
  Sex: Female
  Weight: 69.85 kg

DRUGS (12)
  1. CHANTIX [Suspect]
     Indication: SMOKING CESSATION THERAPY
     Dates: start: 20070102
  2. ALBUTEROL [Concomitant]
     Indication: CHRONIC OBSTRUCTIVE PULMONARY DISEASE
     Route: 055
  3. AMBIEN [Concomitant]
     Indication: INSOMNIA
  4. SPIRIVA [Concomitant]
     Indication: CHRONIC OBSTRUCTIVE PULMONARY DISEASE
     Route: 055
  5. ADVAIR DISKUS 100/50 [Concomitant]
     Indication: CHRONIC OBSTRUCTIVE PULMONARY DISEASE
     Route: 055
  6. FUROSEMIDE [Concomitant]
     Indication: PULMONARY HYPERTENSION
  7. SPIRONOLACTONE [Concomitant]
     Indication: PULMONARY HYPERTENSION
  8. NEURONTIN [Concomitant]
  9. PROZAC [Concomitant]
     Indication: DEPRESSION
  10. ZYPREXA [Concomitant]
  11. EFFEXOR XR [Concomitant]
     Indication: DEPRESSION
  12. EFFEXOR [Concomitant]
     Indication: DEPRESSION

REACTIONS (2)
  - DRUG INEFFECTIVE [None]
  - TOBACCO USER [None]
